FAERS Safety Report 7693558-0 (Version None)
Quarter: 2011Q3

REPORT INFORMATION
  Report Type: 
  Country: None (occurrence: None)
  Receive Date: 20110819
  Receipt Date: 20110809
  Transmission Date: 20111222
  Serious: Yes (Life-Threatening, Hospitalization)
  Sender: FDA-Public Use
  Company Number: CN-BRACCO-000220

PATIENT
  Age: 57 Year
  Sex: Female

DRUGS (2)
  1. MULTIHANCE [Suspect]
     Indication: ANGIOGRAM
     Route: 042
     Dates: start: 20110809, end: 20110809
  2. MULTIHANCE [Suspect]
     Indication: DIZZINESS
     Route: 042
     Dates: start: 20110809, end: 20110809

REACTIONS (3)
  - TACHYPNOEA [None]
  - LARYNGEAL OEDEMA [None]
  - PALLOR [None]
